FAERS Safety Report 13859387 (Version 1)
Quarter: 2017Q3

REPORT INFORMATION
  Report Type: Spontaneous
  Country: US (occurrence: US)
  Receive Date: 20170811
  Receipt Date: 20170811
  Transmission Date: 20171127
  Serious: Yes (Other)
  Sender: FDA-Public Use
  Company Number: None

PATIENT
  Sex: Male
  Weight: 63 kg

DRUGS (1)
  1. BASAGLAR [Suspect]
     Active Substance: INSULIN GLARGINE
     Indication: DIABETES MELLITUS
     Dosage: ?          QUANTITY:15 INJECTION(S);?
     Route: 058
     Dates: start: 20170808, end: 20170810

REACTIONS (4)
  - Pruritus [None]
  - Pain [None]
  - Blister [None]
  - Rash [None]

NARRATIVE: CASE EVENT DATE: 20170810
